FAERS Safety Report 7818187-7 (Version None)
Quarter: 2011Q4

REPORT INFORMATION
  Report Type: 
  Country: None (occurrence: None)
  Receive Date: 20111017
  Receipt Date: 20111011
  Transmission Date: 20120403
  Serious: Yes (Death, Hospitalization)
  Sender: FDA-Public Use
  Company Number: PHHY2011CO76279

PATIENT
  Sex: Male

DRUGS (1)
  1. AFINITOR [Suspect]
     Indication: RENAL CELL CARCINOMA
     Dosage: 10 MG, QD
     Route: 048
     Dates: start: 20110801, end: 20110816

REACTIONS (5)
  - SPEECH DISORDER [None]
  - DYSPNOEA [None]
  - METASTASIS [None]
  - COUGH [None]
  - RESPIRATORY FAILURE [None]
